FAERS Safety Report 5084123-2 (Version None)
Quarter: 2006Q3

REPORT INFORMATION
  Report Type: 
  Country: None (occurrence: None)
  Receive Date: 20060816
  Receipt Date: 20060810
  Transmission Date: 20061208
  Serious: Yes (Hospitalization)
  Sender: FDA-Public Use
  Company Number: 2006BI008740

PATIENT
  Age: 50 Year
  Sex: Male
  Weight: 70.3075 kg

DRUGS (4)
  1. AVONEX [Suspect]
     Indication: PROGRESSIVE MULTIPLE SCLEROSIS
     Dosage: 30 UG; QW; IM
     Route: 030
     Dates: start: 19980701, end: 20030801
  2. AVONEX [Suspect]
     Indication: PROGRESSIVE MULTIPLE SCLEROSIS
     Dosage: 30 UG; QW; IM
     Route: 030
     Dates: start: 20030801
  3. SAW PALMETTO [Concomitant]
  4. NOVANTRONE [Concomitant]

REACTIONS (15)
  - ABDOMINAL PAIN UPPER [None]
  - BACK DISORDER [None]
  - BLADDER SPASM [None]
  - BODY HEIGHT DECREASED [None]
  - DEPRESSION [None]
  - FALL [None]
  - HYPERCHLORHYDRIA [None]
  - MUSCLE SPASMS [None]
  - MUSCULOSKELETAL PAIN [None]
  - OEDEMA PERIPHERAL [None]
  - ROTATOR CUFF SYNDROME [None]
  - URINARY HESITATION [None]
  - URINARY TRACT INFECTION [None]
  - VISION BLURRED [None]
  - VISUAL ACUITY REDUCED [None]
